FAERS Safety Report 9934093 (Version 2)
Quarter: 2014Q1

REPORT INFORMATION
  Report Type: Spontaneous
  Country: US (occurrence: US)
  Receive Date: 20140228
  Receipt Date: 20140228
  Transmission Date: 20141002
  Serious: No
  Sender: FDA-Public Use
  Company Number: US-ABBVIE-13P-163-1176164-00

PATIENT
  Age: 66 Year
  Sex: Male
  Weight: 90.8 kg

DRUGS (1)
  1. ANDROGEL [Suspect]
     Indication: BENIGN PROSTATIC HYPERPLASIA
     Dosage: 2 PUMPS DAILY
     Route: 061
     Dates: start: 20131119

REACTIONS (8)
  - Inappropriate schedule of drug administration [Not Recovered/Not Resolved]
  - Dyspnoea [Not Recovered/Not Resolved]
  - Fatigue [Not Recovered/Not Resolved]
  - Asthenia [Not Recovered/Not Resolved]
  - Insomnia [Not Recovered/Not Resolved]
  - Anger [Not Recovered/Not Resolved]
  - Dizziness [Not Recovered/Not Resolved]
  - Hyperhidrosis [Not Recovered/Not Resolved]
